FAERS Safety Report 19200457 (Version 1)
Quarter: 2021Q2

REPORT INFORMATION
  Report Type: Other
  Country: US (occurrence: US)
  Receive Date: 20210429
  Receipt Date: 20210429
  Transmission Date: 20210717
  Serious: No
  Sender: FDA-Public Use
  Company Number: US-ROCHE-2819808

PATIENT
  Sex: Female

DRUGS (1)
  1. OCREVUS [Suspect]
     Active Substance: OCRELIZUMAB
     Indication: MULTIPLE SCLEROSIS
     Dosage: DATES OF TREATMENT : 28?DEC?2020, 27?JUL?2020, 14?AUG?2018, 31?AUG?2018 , 29?AUG?2018
     Route: 042

REACTIONS (1)
  - COVID-19 [Recovered/Resolved]
